FAERS Safety Report 23885243 (Version 1)
Quarter: 2024Q2

REPORT INFORMATION
  Report Type: Spontaneous
  Country: IN (occurrence: IN)
  Receive Date: 20240522
  Receipt Date: 20240522
  Transmission Date: 20240715
  Serious: Yes (Life-Threatening, Hospitalization, Other)
  Sender: FDA-Public Use
  Company Number: IN-Accord-425491

PATIENT
  Age: 7 Decade
  Sex: Male

DRUGS (2)
  1. METHOTREXATE [Suspect]
     Active Substance: METHOTREXATE
     Indication: Rheumatoid arthritis
     Dosage: PRESCRIBED ONCE WEEKLY, CONTINUED TO TAKE MTX DAILY
  2. FOLIC ACID [Concomitant]
     Active Substance: FOLIC ACID
     Indication: Rheumatoid arthritis

REACTIONS (6)
  - Myelosuppression [Recovered/Resolved]
  - Nephropathy [Recovered/Resolved]
  - Mucocutaneous ulceration [Recovered/Resolved]
  - Inappropriate schedule of product administration [Unknown]
  - Toxicity to various agents [Recovered/Resolved]
  - Chronic kidney disease [Recovered/Resolved]
